FAERS Safety Report 4320554-3 (Version None)
Quarter: 2004Q1

REPORT INFORMATION
  Report Type: 
  Country: None (occurrence: None)
  Receive Date: 20040317
  Receipt Date: 20040303
  Transmission Date: 20041129
  Serious: Yes (Hospitalization, Other)
  Sender: FDA-Public Use
  Company Number: 2004008048

PATIENT
  Age: 64 Year
  Sex: Male

DRUGS (2)
  1. FLUCONAZOLE [Suspect]
     Indication: ILL-DEFINED DISORDER
  2. SERTRALINE HCL [Concomitant]

REACTIONS (15)
  - ANAEMIA [None]
  - ASTHENIA [None]
  - BLOOD POTASSIUM INCREASED [None]
  - DECREASED APPETITE [None]
  - DEHYDRATION [None]
  - DEPRESSION [None]
  - DIARRHOEA [None]
  - FATIGUE [None]
  - HEMIPARESIS [None]
  - HEPATIC ENZYME INCREASED [None]
  - MARKEDLY REDUCED DIETARY INTAKE [None]
  - ORTHOSTATIC HYPOTENSION [None]
  - PNEUMONIA [None]
  - TACHYCARDIA [None]
  - WEIGHT DECREASED [None]
